FAERS Safety Report 5323459-4 (Version None)
Quarter: 2007Q2

REPORT INFORMATION
  Report Type: 
  Country: None (occurrence: None)
  Receive Date: 20070514
  Receipt Date: 20070502
  Transmission Date: 20071010
  Serious: Yes (Hospitalization)
  Sender: FDA-Public Use
  Company Number: PHRM2007FR01386

PATIENT
  Age: 77 Year
  Sex: Female

DRUGS (5)
  1. DI-ANTALVIC [Suspect]
     Indication: RIB FRACTURE
     Dosage: UNK, UNK
     Route: 048
  2. COLTRAMYL [Concomitant]
     Dosage: UNK, UNK
     Route: 048
  3. EFFEXOR [Concomitant]
     Dosage: UNK, UNK
     Route: 048
  4. LYSANXIA [Concomitant]
     Dosage: 10 MG, QD
     Route: 048
  5. TEGRETOL [Suspect]
     Dosage: 600 MG/DAY
     Route: 048

REACTIONS (6)
  - ANTICONVULSANT DRUG LEVEL ABOVE THERAPEUTIC [None]
  - AREFLEXIA [None]
  - DRUG INTERACTION [None]
  - HYPONATRAEMIA [None]
  - RIB FRACTURE [None]
  - SOMATOFORM DISORDER [None]
